FAERS Safety Report 6661493-2 (Version None)
Quarter: 2010Q1

REPORT INFORMATION
  Report Type: 
  Country: None (occurrence: None)
  Receive Date: 20100331
  Receipt Date: 20100321
  Transmission Date: 20100710
  Serious: Yes (Death)
  Sender: FDA-Public Use
  Company Number: US-PFIZER INC-2010036665

PATIENT
  Age: 44 Year
  Sex: Male

DRUGS (2)
  1. NORVASC [Suspect]
  2. DANTROLENE [Interacting]

REACTIONS (1)
  - DRUG INTERACTION [None]
